FAERS Safety Report 9604696 (Version 1)
Quarter: 2013Q4

REPORT INFORMATION
  Report Type: Spontaneous
  Country: US (occurrence: US)
  Receive Date: 20131008
  Receipt Date: 20131008
  Transmission Date: 20140711
  Serious: No
  Sender: FDA-Public Use
  Company Number: US-PFIZER INC-2013283516

PATIENT
  Sex: 0

DRUGS (4)
  1. IRINOTECAN HCL [Suspect]
     Dosage: UNK
  2. TEMSIROLIMUS [Suspect]
     Dosage: 35 MG/M2, CYCLIC
  3. ZOLEDRONIC ACID [Suspect]
     Dosage: UNK
  4. TEMOZOLOMIDE [Suspect]
     Dosage: UNK

REACTIONS (1)
  - Nausea [Unknown]
